FAERS Safety Report 6994014-5 (Version None)
Quarter: 2010Q3

REPORT INFORMATION
  Report Type: 
  Country: None (occurrence: None)
  Receive Date: 20100917
  Receipt Date: 20100119
  Transmission Date: 20110219
  Serious: No
  Sender: FDA-Public Use
  Company Number: US-ASTRAZENECA-2010SE02628

PATIENT
  Age: 28 Year
  Sex: Female

DRUGS (5)
  1. SEROQUEL XR [Suspect]
     Route: 048
  2. SEROQUEL XR [Suspect]
     Route: 048
  3. METHADONE [Concomitant]
  4. DEPAKOTE [Concomitant]
  5. LEXAPRO [Concomitant]

REACTIONS (2)
  - DIARRHOEA [None]
  - HYPERHIDROSIS [None]
